FAERS Safety Report 5804732-X (Version None)
Quarter: 2008Q3

REPORT INFORMATION
  Report Type: 
  Country: None (occurrence: None)
  Receive Date: 20080709
  Receipt Date: 20080619
  Transmission Date: 20090109
  Serious: Yes (Hospitalization)
  Sender: FDA-Public Use
  Company Number: FR-NOVOPROD-277134

PATIENT
  Age: 71 Year
  Sex: Female

DRUGS (10)
  1. LEVEMIR [Suspect]
     Indication: DRUG USE FOR UNKNOWN INDICATION
     Dosage: 10 IU, QD
  2. COAPROVEL [Concomitant]
     Dosage: 300 MG, QD
  3. FUROSEMIDE [Concomitant]
     Dosage: 20 MG, QD
  4. LYRICA [Concomitant]
     Dosage: 150 MG, QD
     Dates: start: 20080401
  5. TEMERIT                            /01339101/ [Concomitant]
     Dosage: 10 MG, QD
  6. LERCAN [Concomitant]
     Dosage: 10 MG, QD
     Route: 048
  7. CLAMOXYL                           /00249601/ [Concomitant]
     Dosage: 3 G, QD
  8. GLUCOPHAGE [Concomitant]
     Dosage: 1000 MG, QD
  9. FLECAINIDE ACETATE [Concomitant]
     Dosage: 150 UNK, QD
  10. FLUOXETINE [Concomitant]
     Dosage: 20 MG, QD

REACTIONS (2)
  - HYPERKALAEMIA [None]
  - RENAL FAILURE [None]
